FAERS Safety Report 21390659 (Version 10)
Quarter: 2023Q4

REPORT INFORMATION
  Report Type: Report from Study
  Country: JP (occurrence: JP)
  Receive Date: 20220929
  Receipt Date: 20231212
  Transmission Date: 20240110
  Serious: Yes (Other)
  Sender: FDA-Public Use
  Company Number: JP-ASTELLAS-2022JP007771

PATIENT
  Age: 59 Year
  Sex: Female
  Weight: 59 kg

DRUGS (11)
  1. ENFORTUMAB VEDOTIN [Suspect]
     Active Substance: ENFORTUMAB VEDOTIN
     Indication: Ureteric cancer
     Dosage: 1.25MG/KG, ONCE WEEKLY FOR 3 WEEKS AND REST IN WEEK 4
     Route: 041
     Dates: start: 20220120, end: 20220428
  2. ENFORTUMAB VEDOTIN [Suspect]
     Active Substance: ENFORTUMAB VEDOTIN
     Route: 041
     Dates: start: 20220519, end: 20220630
  3. ENFORTUMAB VEDOTIN [Suspect]
     Active Substance: ENFORTUMAB VEDOTIN
     Dosage: 1.25MG/KG, ONCE WEEKLY FOR 3 WEEKS AND REST IN WEEK 4
     Route: 041
     Dates: start: 20220714, end: 20220728
  4. ENFORTUMAB VEDOTIN [Suspect]
     Active Substance: ENFORTUMAB VEDOTIN
     Dosage: 1.25MG/KG, ONCE WEEKLY FOR 3 WEEKS AND REST IN WEEK 4
     Route: 041
     Dates: start: 20220815, end: 20221027
  5. TRAMADOL [Concomitant]
     Active Substance: TRAMADOL\TRAMADOL HYDROCHLORIDE
     Indication: Cancer pain
     Dosage: UNK UNK, UNKNOWN FREQ.
     Route: 065
     Dates: start: 2021
  6. AVELUMAB [Concomitant]
     Active Substance: AVELUMAB
     Indication: Ureteric cancer
     Dosage: UNK UNK, UNKNOWN FREQ.
     Route: 065
     Dates: start: 20210805, end: 20220117
  7. LEVOTHYROXINE SODIUM [Concomitant]
     Active Substance: LEVOTHYROXINE SODIUM
     Indication: Hypothyroidism
     Route: 048
     Dates: start: 20220217
  8. URSODIOL [Concomitant]
     Active Substance: URSODIOL
     Indication: Hepatic function abnormal
     Route: 048
     Dates: start: 20220519
  9. METHYLCOBALAMIN [Concomitant]
     Active Substance: METHYLCOBALAMIN
     Indication: Neuropathy peripheral
     Route: 048
     Dates: start: 20220714
  10. PREGABALIN [Concomitant]
     Active Substance: PREGABALIN
     Indication: Neuropathy peripheral
     Route: 048
     Dates: start: 20220721
  11. Hachiazule [Concomitant]
     Indication: Stomatitis
     Route: 050
     Dates: start: 20220428, end: 20220728

REACTIONS (11)
  - Metastases to pelvis [Unknown]
  - Neuropathy peripheral [Not Recovered/Not Resolved]
  - Pigmentation disorder [Not Recovered/Not Resolved]
  - Madarosis [Not Recovered/Not Resolved]
  - Hypothyroidism [Not Recovered/Not Resolved]
  - Dermatitis bullous [Not Recovered/Not Resolved]
  - Taste disorder [Recovered/Resolved]
  - Stomatitis [Not Recovered/Not Resolved]
  - Hepatic function abnormal [Not Recovered/Not Resolved]
  - Lymphocyte count decreased [Recovered/Resolved]
  - Bone lesion [Not Recovered/Not Resolved]

NARRATIVE: CASE EVENT DATE: 20220201
